FAERS Safety Report 20655673 (Version 7)
Quarter: 2022Q3

REPORT INFORMATION
  Report Type: Spontaneous
  Country: US (occurrence: US)
  Receive Date: 20220330
  Receipt Date: 20220707
  Transmission Date: 20221027
  Serious: Yes (Other)
  Sender: FDA-Public Use
  Company Number: US-PFIZER INC-202200461940

PATIENT
  Age: 76 Year
  Sex: Female
  Weight: 59.87 kg

DRUGS (10)
  1. PAXLOVID [Suspect]
     Active Substance: NIRMATRELVIR\RITONAVIR
     Indication: COVID-19 treatment
     Dosage: 400 MG, 2X/DAY
     Dates: start: 20220323, end: 20220324
  2. ATORVASTATIN CALCIUM [Suspect]
     Active Substance: ATORVASTATIN CALCIUM
     Indication: Blood cholesterol
     Dosage: 10 MG, 1X/DAY
     Dates: start: 201801
  3. ATORVASTATIN CALCIUM [Suspect]
     Active Substance: ATORVASTATIN CALCIUM
     Dosage: 10 MG, 1X/DAY
     Dates: start: 20190101
  4. NITROFURANTOIN MONOHYDRATE MACROCRYSTALS [Concomitant]
     Active Substance: NITROFURANTOIN\NITROFURANTOIN MONOHYDRATE
     Dosage: UNK
  5. SANDOZ ADAPALENE/BENZOYL PEROXIDE [Concomitant]
     Dosage: UNK
     Dates: start: 202203, end: 202203
  6. VITAMIN D3 [Concomitant]
     Active Substance: CHOLECALCIFEROL
     Dosage: 50 UG (2000IU)
     Dates: start: 20211001
  7. NATURES BOUNTY TUMERIC [Concomitant]
     Dosage: UNK
     Dates: start: 202110
  8. CRANBERRY [Concomitant]
     Active Substance: CRANBERRY
     Dosage: UNK
     Dates: start: 20220301
  9. AZO [Concomitant]
     Active Substance: PHENAZOPYRIDINE HYDROCHLORIDE
     Dosage: UNK
     Dates: start: 202203
  10. ATORVASTATIN [Concomitant]
     Active Substance: ATORVASTATIN
     Indication: Blood cholesterol
     Dosage: 10 MG, 1X/DAY
     Dates: start: 20190101

REACTIONS (4)
  - Dermatitis allergic [Not Recovered/Not Resolved]
  - Swelling face [Recovered/Resolved]
  - Lip swelling [Recovered/Resolved]
  - Urticaria [Not Recovered/Not Resolved]

NARRATIVE: CASE EVENT DATE: 20220323
